FAERS Safety Report 25085394 (Version 1)
Quarter: 2025Q1

REPORT INFORMATION
  Report Type: Other
  Country: US (occurrence: US)
  Receive Date: 20250317
  Receipt Date: 20250317
  Transmission Date: 20250409
  Serious: No
  Sender: ALEMBIC
  Company Number: US-ALEMBIC PHARMACUETICALS LIMITED-2025SCAL000151

PATIENT

DRUGS (1)
  1. IRBESARTAN AND HYDROCHLOROTHIAZIDE [Suspect]
     Active Substance: HYDROCHLOROTHIAZIDE\IRBESARTAN
     Indication: Blood pressure measurement
     Route: 048
     Dates: start: 20250106, end: 202501

REACTIONS (8)
  - Insomnia [Recovered/Resolved]
  - Palpitations [Recovered/Resolved]
  - Suspected product quality issue [Unknown]
  - Product substitution issue [Unknown]
  - Blood pressure systolic increased [Recovered/Resolved]
  - Heart rate increased [Recovered/Resolved]
  - Diarrhoea [Recovered/Resolved]
  - Vomiting [Recovered/Resolved]

NARRATIVE: CASE EVENT DATE: 20250106
